FAERS Safety Report 9253860 (Version 2)
Quarter: 2013Q2

REPORT INFORMATION
  Report Type: Spontaneous
  Country: CL (occurrence: CL)
  Receive Date: 20130425
  Receipt Date: 20130516
  Transmission Date: 20140414
  Serious: Yes (Other)
  Sender: FDA-Public Use
  Company Number: CL-JNJFOC-20130409412

PATIENT
  Sex: Female

DRUGS (1)
  1. XARELTO [Suspect]
     Indication: PRODUCT USED FOR UNKNOWN INDICATION
     Route: 048

REACTIONS (1)
  - Diarrhoea infectious [Unknown]
